FAERS Safety Report 5839176-8 (Version None)
Quarter: 2008Q3

REPORT INFORMATION
  Report Type: 
  Country: None (occurrence: None)
  Receive Date: 20080808
  Receipt Date: 20080806
  Transmission Date: 20090109
  Serious: Yes (Hospitalization)
  Sender: FDA-Public Use
  Company Number: GB-MERCK-0808GBR00031

PATIENT
  Age: 41 Year

DRUGS (20)
  1. ZOCOR [Suspect]
     Indication: BLOOD CHOLESTEROL INCREASED
     Route: 048
  2. ZITHROMAX [Suspect]
     Indication: URINARY TRACT INFECTION
     Route: 065
  3. AMITRIPTYLINE HYDROCHLORIDE [Concomitant]
     Route: 065
  4. ASPIRIN [Concomitant]
     Route: 065
  5. AZATHIOPRINE [Concomitant]
     Route: 065
  6. BETAHISTINE HYDROCHLORIDE [Concomitant]
     Route: 065
  7. CEPHALEXIN [Concomitant]
     Indication: PROPHYLAXIS
     Route: 065
  8. CYCLOSPORINE [Concomitant]
     Route: 065
  9. CYCLOSPORINE [Concomitant]
     Route: 065
  10. DIAZEPAM [Concomitant]
     Route: 065
  11. FLUDROCORTISONE [Concomitant]
     Route: 065
  12. FOLIC ACID [Concomitant]
     Route: 065
  13. INSULIN GLARGINE [Concomitant]
     Route: 065
  14. LANSOPRAZOLE [Concomitant]
     Route: 065
  15. METOPROLOL [Concomitant]
     Route: 065
  16. MOVICOL [Concomitant]
     Route: 065
  17. INSULIN ASPART [Concomitant]
     Route: 065
  18. PREDNISOLONE [Concomitant]
     Route: 065
  19. QUININE SULFATE [Concomitant]
     Route: 065
  20. SODIUM BICARBONATE [Concomitant]
     Route: 065

REACTIONS (2)
  - DRUG INTERACTION [None]
  - RHABDOMYOLYSIS [None]
